FAERS Safety Report 18057299 (Version 1)
Quarter: 2020Q3

REPORT INFORMATION
  Report Type: Other
  Country: BE (occurrence: BE)
  Receive Date: 20200723
  Receipt Date: 20200723
  Transmission Date: 20201103
  Serious: Yes (Other)
  Sender: FDA-Public Use
  Company Number: BE-ROCHE-2645582

PATIENT

DRUGS (6)
  1. CAPECITABINE. [Suspect]
     Active Substance: CAPECITABINE
     Indication: GASTRIC CANCER
     Dosage: ARM B, 2 WEEKS ON/1 WEEK OFF, STARTING DOSE
     Route: 048
  2. AFLIBERCEPT [Suspect]
     Active Substance: AFLIBERCEPT
     Indication: COLORECTAL CANCER
     Route: 042
  3. CAPECITABINE. [Suspect]
     Active Substance: CAPECITABINE
     Indication: BREAST CANCER
  4. AFLIBERCEPT [Suspect]
     Active Substance: AFLIBERCEPT
     Indication: BREAST CANCER
  5. CAPECITABINE. [Suspect]
     Active Substance: CAPECITABINE
     Indication: COLORECTAL CANCER
     Dosage: ARM A STARTING DOSE
     Route: 048
  6. AFLIBERCEPT [Suspect]
     Active Substance: AFLIBERCEPT
     Indication: GASTRIC CANCER

REACTIONS (11)
  - Fatigue [Unknown]
  - Diarrhoea [Unknown]
  - Hypertension [Unknown]
  - Abdominal pain [Unknown]
  - Pain [Unknown]
  - Infection [Unknown]
  - Proteinuria [Unknown]
  - Embolism venous [Unknown]
  - Palmar-plantar erythrodysaesthesia syndrome [Unknown]
  - Dyspnoea [Unknown]
  - Hyperbilirubinaemia [Unknown]
